FAERS Safety Report 6933094-X (Version None)
Quarter: 2010Q3

REPORT INFORMATION
  Report Type: 
  Country: None (occurrence: None)
  Receive Date: 20100817
  Receipt Date: 20100810
  Transmission Date: 20110219
  Serious: Yes (Hospitalization, Other)
  Sender: FDA-Public Use
  Company Number: 2009SP043059

PATIENT
  Age: 27 Year
  Sex: Female
  Weight: 81.6475 kg

DRUGS (1)
  1. NUVARING [Suspect]
     Indication: CONTRACEPTION
     Dosage: VAG
     Route: 067
     Dates: start: 20050524, end: 20070901

REACTIONS (24)
  - ANAEMIA [None]
  - ANXIETY [None]
  - BRONCHITIS [None]
  - COGNITIVE DISORDER [None]
  - COSTOCHONDRITIS [None]
  - DEEP VEIN THROMBOSIS [None]
  - EMOTIONAL DISORDER [None]
  - FIBROMYALGIA [None]
  - HERPES SIMPLEX [None]
  - HYPERLIPIDAEMIA [None]
  - HYPERSENSITIVITY [None]
  - INJECTION SITE SWELLING [None]
  - INJURY [None]
  - MENTAL DISORDER [None]
  - MULTIPLE ALLERGIES [None]
  - OVARIAN CYST [None]
  - PAIN IN EXTREMITY [None]
  - PANIC ATTACK [None]
  - PULMONARY EMBOLISM [None]
  - SINUS DISORDER [None]
  - SUPRAVENTRICULAR EXTRASYSTOLES [None]
  - SUPRAVENTRICULAR TACHYCARDIA [None]
  - THYROID NEOPLASM [None]
  - UPPER RESPIRATORY TRACT INFECTION [None]
